FAERS Safety Report 4977737-9 (Version None)
Quarter: 2006Q2

REPORT INFORMATION
  Report Type: 
  Country: None (occurrence: None)
  Receive Date: 20060420
  Receipt Date: 20060413
  Transmission Date: 20061013
  Serious: Yes (Hospitalization)
  Sender: FDA-Public Use
  Company Number: PHEH2006US04915

PATIENT

DRUGS (1)
  1. ELIDEL [Suspect]
     Route: 061

REACTIONS (1)
  - NETHERTON'S SYNDROME [None]
